FAERS Safety Report 4638535-9 (Version None)
Quarter: 2005Q2

REPORT INFORMATION
  Report Type: 
  Country: None (occurrence: None)
  Receive Date: 20050418
  Receipt Date: 20050418
  Transmission Date: 20051028
  Serious: Yes (Hospitalization)
  Sender: FDA-Public Use
  Company Number: None

PATIENT
  Age: 58 Year
  Sex: Male
  Weight: 94.3482 kg

DRUGS (17)
  1. DOXORUBICIN HCL [Suspect]
     Indication: PROSTATE CANCER
     Dosage: 50 MG/M2   SEE IMAGE
     Dates: start: 20041025
  2. DOXORUBICIN HCL [Suspect]
     Indication: PROSTATE CANCER
     Dosage: 50 MG/M2   SEE IMAGE
     Dates: start: 20041110
  3. DOXORUBICIN HCL [Suspect]
     Indication: PROSTATE CANCER
     Dosage: 50 MG/M2   SEE IMAGE
     Dates: start: 20041113
  4. DOXORUBICIN HCL [Suspect]
     Indication: PROSTATE CANCER
     Dosage: 50 MG/M2   SEE IMAGE
     Dates: start: 20041130
  5. DOXORUBICIN HCL [Suspect]
     Indication: PROSTATE CANCER
     Dosage: 50 MG/M2   SEE IMAGE
     Dates: start: 20050110
  6. TAXOTERE [Suspect]
     Indication: PROSTATE CANCER
     Dosage: 70MG/M2   SEE IMAGE
     Dates: start: 20041025
  7. TAXOTERE [Suspect]
     Indication: PROSTATE CANCER
     Dosage: 70MG/M2   SEE IMAGE
     Dates: start: 20050110
  8. TAXOTERE [Suspect]
     Indication: PROSTATE CANCER
     Dosage: 70MG/M2   SEE IMAGE
     Dates: start: 20050201
  9. TAXOTERE [Suspect]
     Indication: PROSTATE CANCER
     Dosage: 70MG/M2   SEE IMAGE
     Dates: start: 20050208
  10. TAXOTERE [Suspect]
     Indication: PROSTATE CANCER
     Dosage: 70MG/M2   SEE IMAGE
     Dates: start: 20050215
  11. TAXOTERE [Suspect]
     Indication: PROSTATE CANCER
     Dosage: 70MG/M2   SEE IMAGE
     Dates: start: 20050222
  12. TAXOTERE [Suspect]
     Indication: PROSTATE CANCER
     Dosage: 70MG/M2   SEE IMAGE
     Dates: start: 20050307
  13. LO-TROL [Concomitant]
  14. HYDROCHLOROTHIAZIDE [Concomitant]
  15. ALBUTEROL [Concomitant]
  16. COMPAZINE [Concomitant]
  17. ZOFRAN [Concomitant]

REACTIONS (8)
  - ASTHENIA [None]
  - CELLULITIS [None]
  - CHILLS [None]
  - NECROTISING FASCIITIS [None]
  - PYREXIA [None]
  - RESPIRATORY DISTRESS [None]
  - SCROTAL PAIN [None]
  - SWELLING [None]
